FAERS Safety Report 10531362 (Version 1)
Quarter: 2014Q4

REPORT INFORMATION
  Report Type: Spontaneous
  Country: TW (occurrence: TW)
  Receive Date: 20141021
  Receipt Date: 20141021
  Transmission Date: 20150529
  Serious: Yes (Other)
  Sender: FDA-Public Use
  Company Number: TW-ACTAVIS-2014-22287

PATIENT
  Age: 62 Year
  Sex: Male

DRUGS (6)
  1. LAMOTRIGINE. [Concomitant]
     Active Substance: LAMOTRIGINE
     Dosage: 75 MG, DAILY
     Route: 065
  2. QUETIAPINE (UNKNOWN) [Suspect]
     Active Substance: QUETIAPINE
     Indication: HALLUCINATION, AUDITORY
     Dosage: 100 MG, DAILY
     Route: 065
  3. BUPROPION                          /00700502/ [Concomitant]
     Indication: MAJOR DEPRESSION
     Dosage: 150 MG, DAILY
     Route: 065
  4. LAMOTRIGINE. [Concomitant]
     Active Substance: LAMOTRIGINE
     Indication: BIPOLAR DISORDER
     Dosage: 25 MG, DAILY
     Route: 065
  5. QUETIAPINE (UNKNOWN) [Suspect]
     Active Substance: QUETIAPINE
     Indication: INSOMNIA
     Dosage: 200 MG, DAILY
     Route: 065
  6. BUPROPION                          /00700502/ [Concomitant]
     Dosage: 300 MG, DAILY
     Route: 065

REACTIONS (4)
  - Constipation [Unknown]
  - Dry skin [Unknown]
  - Abdominal discomfort [Unknown]
  - Dry mouth [Unknown]
